FAERS Safety Report 6870651-3 (Version None)
Quarter: 2010Q3

REPORT INFORMATION
  Report Type: 
  Country: None (occurrence: None)
  Receive Date: 20100723
  Receipt Date: 20100711
  Transmission Date: 20110219
  Serious: Yes (Other)
  Sender: FDA-Public Use
  Company Number: PHHY2010US45799

PATIENT
  Age: 73 Year
  Sex: Female

DRUGS (2)
  1. RECLAST [Suspect]
     Dosage: UNK
     Dates: start: 20100201
  2. FOSAMAX [Suspect]

REACTIONS (8)
  - ARTHRALGIA [None]
  - ASTHENIA [None]
  - BACK PAIN [None]
  - BLOOD CALCIUM DECREASED [None]
  - DENTAL OPERATION [None]
  - FALL [None]
  - GINGIVAL DISORDER [None]
  - HAEMATOMA [None]
